FAERS Safety Report 25270379 (Version 2)
Quarter: 2025Q2

REPORT INFORMATION
  Report Type: Spontaneous
  Country: CN (occurrence: CN)
  Receive Date: 20250505
  Receipt Date: 20250520
  Transmission Date: 20250717
  Serious: Yes (Hospitalization)
  Sender: PFIZER
  Company Number: CN-PFIZER INC-PV202500051368

PATIENT
  Age: 9 Year
  Sex: Male
  Weight: 25 kg

DRUGS (20)
  1. CYTARABINE [Suspect]
     Active Substance: CYTARABINE
     Indication: Neck mass
     Dosage: 143.625 MG, 2X/DAY (150MG/M2 FROM DAY 4 TO DAY 5)
     Route: 041
     Dates: start: 20250413, end: 20250414
  2. CYTARABINE [Suspect]
     Active Substance: CYTARABINE
     Indication: Pain in extremity
  3. CYTARABINE [Suspect]
     Active Substance: CYTARABINE
     Indication: Anaemia
  4. CYTARABINE [Suspect]
     Active Substance: CYTARABINE
     Indication: Burkitt^s lymphoma
  5. METHOTREXATE SODIUM [Suspect]
     Active Substance: METHOTREXATE SODIUM
     Indication: Neck mass
     Dosage: 4787.500 MG, 1X/DAY (5G/M2 ON DAY 1)
     Route: 041
     Dates: start: 20250410, end: 20250410
  6. METHOTREXATE SODIUM [Suspect]
     Active Substance: METHOTREXATE SODIUM
     Indication: Pain in extremity
  7. METHOTREXATE SODIUM [Suspect]
     Active Substance: METHOTREXATE SODIUM
     Indication: Anaemia
  8. METHOTREXATE SODIUM [Suspect]
     Active Substance: METHOTREXATE SODIUM
     Indication: Burkitt^s lymphoma
  9. ETOPOSIDE [Suspect]
     Active Substance: ETOPOSIDE
     Indication: Neck mass
     Dosage: 0.096 G, 1X/DAY (0.1G/M2 FROM DAY 4 TO DAY 5)
     Route: 041
     Dates: start: 20250413, end: 20250414
  10. ETOPOSIDE [Suspect]
     Active Substance: ETOPOSIDE
     Indication: Pain in extremity
  11. ETOPOSIDE [Suspect]
     Active Substance: ETOPOSIDE
     Indication: Anaemia
  12. ETOPOSIDE [Suspect]
     Active Substance: ETOPOSIDE
     Indication: Burkitt^s lymphoma
  13. IFOSFAMIDE [Suspect]
     Active Substance: IFOSFAMIDE
     Indication: Neck mass
     Dosage: 0.766 G, 1X/DAY (800MG/M2 FROM DAY 1 TO DAY 5)
     Route: 041
     Dates: start: 20250410, end: 20250414
  14. IFOSFAMIDE [Suspect]
     Active Substance: IFOSFAMIDE
     Indication: Pain in extremity
  15. IFOSFAMIDE [Suspect]
     Active Substance: IFOSFAMIDE
     Indication: Anaemia
  16. IFOSFAMIDE [Suspect]
     Active Substance: IFOSFAMIDE
     Indication: Burkitt^s lymphoma
  17. VINCRISTINE SULFATE [Suspect]
     Active Substance: VINCRISTINE SULFATE
     Indication: Neck mass
     Dosage: 1.436 MG, 1X/DAY (1.5MG/M2 ON DAY 1)
     Route: 041
     Dates: start: 20250410, end: 20250410
  18. VINCRISTINE SULFATE [Suspect]
     Active Substance: VINCRISTINE SULFATE
     Indication: Pain in extremity
  19. VINCRISTINE SULFATE [Suspect]
     Active Substance: VINCRISTINE SULFATE
     Indication: Anaemia
  20. VINCRISTINE SULFATE [Suspect]
     Active Substance: VINCRISTINE SULFATE
     Indication: Burkitt^s lymphoma

REACTIONS (6)
  - Myelosuppression [Recovering/Resolving]
  - Infection [Recovering/Resolving]
  - Oropharyngeal pain [Unknown]
  - Pallor [Unknown]
  - Pyrexia [Recovered/Resolved]
  - Mouth ulceration [Unknown]

NARRATIVE: CASE EVENT DATE: 20250415
